FAERS Safety Report 20110864 (Version 1)
Quarter: 2021Q4

REPORT INFORMATION
  Report Type: Spontaneous
  Country: JP (occurrence: JP)
  Receive Date: 20211124
  Receipt Date: 20211124
  Transmission Date: 20220303
  Serious: Yes (Death, Other)
  Sender: FDA-Public Use
  Company Number: JP-ABBVIE-21K-087-4175419-00

PATIENT
  Age: 50 Year
  Sex: Male

DRUGS (11)
  1. VALPROATE SODIUM [Suspect]
     Active Substance: VALPROATE SODIUM
     Indication: Reactive psychosis
     Route: 048
     Dates: start: 20100415, end: 20191016
  2. TRAZODONE HYDROCHLORIDE [Suspect]
     Active Substance: TRAZODONE HYDROCHLORIDE
     Indication: Reactive psychosis
     Route: 048
     Dates: start: 20161219, end: 20191016
  3. OLANZAPINE [Suspect]
     Active Substance: OLANZAPINE
     Indication: Reactive psychosis
     Route: 048
     Dates: start: 20100415, end: 20191016
  4. QUETIAPINE FUMARATE [Suspect]
     Active Substance: QUETIAPINE FUMARATE
     Indication: Reactive psychosis
     Route: 048
     Dates: start: 20070223, end: 20191016
  5. DISTIGMINE BROMIDE [Suspect]
     Active Substance: DISTIGMINE BROMIDE
     Indication: Reactive psychosis
     Route: 048
     Dates: start: 20100316, end: 20191016
  6. CARBAMAZEPINE [Suspect]
     Active Substance: CARBAMAZEPINE
     Indication: Reactive psychosis
     Route: 048
     Dates: start: 20081209, end: 20191016
  7. INTUNIV [Suspect]
     Active Substance: GUANFACINE HYDROCHLORIDE
     Indication: Attention deficit hyperactivity disorder
     Route: 048
     Dates: start: 20190918, end: 20191001
  8. INTUNIV [Suspect]
     Active Substance: GUANFACINE HYDROCHLORIDE
     Route: 048
     Dates: start: 20191002, end: 20191008
  9. INTUNIV [Suspect]
     Active Substance: GUANFACINE HYDROCHLORIDE
     Route: 048
     Dates: start: 20191009, end: 20191016
  10. CONCERTA [Concomitant]
     Active Substance: METHYLPHENIDATE HYDROCHLORIDE
     Indication: Product used for unknown indication
  11. FEXOFENADINE HYDROCHLORIDE [Concomitant]
     Active Substance: FEXOFENADINE HYDROCHLORIDE
     Indication: Product used for unknown indication

REACTIONS (1)
  - Asphyxia [Fatal]

NARRATIVE: CASE EVENT DATE: 20191016
